FAERS Safety Report 7255520-1 (Version None)
Quarter: 2011Q1

REPORT INFORMATION
  Report Type: 
  Country: None (occurrence: None)
  Receive Date: 20110129
  Receipt Date: 20100308
  Transmission Date: 20110831
  Serious: No
  Sender: FDA-Public Use
  Company Number: US-ABBOTT-10P-163-0631012-00

PATIENT
  Sex: Male
  Weight: 77.18 kg

DRUGS (1)
  1. HUMIRA [Suspect]
     Indication: PSORIASIS
     Dosage: DAY 8
     Dates: start: 20100215

REACTIONS (5)
  - SKIN BURNING SENSATION [None]
  - RASH MACULAR [None]
  - PAIN OF SKIN [None]
  - PSORIASIS [None]
  - URTICARIA [None]
